FAERS Safety Report 6147061-X (Version None)
Quarter: 2009Q2

REPORT INFORMATION
  Report Type: 
  Country: None (occurrence: None)
  Receive Date: 20090403
  Receipt Date: 20090325
  Transmission Date: 20091009
  Serious: Yes (Life-Threatening)
  Sender: FDA-Public Use
  Company Number: 2009TJ0034FU2

PATIENT
  Age: 18 Year
  Sex: Female

DRUGS (2)
  1. EPINEPHRINE [Suspect]
     Indication: ANAPHYLACTIC REACTION
     Dosage: 0.3 MG, AS NEEDED
     Dates: end: 20090101
  2. BENADRYL [Concomitant]

REACTIONS (4)
  - DEVICE BREAKAGE [None]
  - DEVICE INEFFECTIVE [None]
  - DEVICE MISUSE [None]
  - PRODUCT QUALITY ISSUE [None]
